FAERS Safety Report 18695370 (Version 1)
Quarter: 2021Q1

REPORT INFORMATION
  Report Type: Report from Study
  Country: US (occurrence: US)
  Receive Date: 20210104
  Receipt Date: 20210104
  Transmission Date: 20210419
  Serious: Yes (Other)
  Sender: FDA-Public Use
  Company Number: US-MYLANLABS-2020M1091925

PATIENT
  Age: 27 Year
  Sex: Female
  Weight: 98 kg

DRUGS (6)
  1. CITALOPRAM [Concomitant]
     Active Substance: CITALOPRAM HYDROBROMIDE
     Dosage: UNK
  2. GLATIRAMER ACETATE INJECTION [Suspect]
     Active Substance: GLATIRAMER ACETATE
     Indication: MULTIPLE SCLEROSIS
     Dosage: 3 WEEKLY
     Route: 058
  3. VITAMIN D3 [Concomitant]
     Active Substance: CHOLECALCIFEROL
     Dosage: UNK
  4. BUPROPION                          /00700502/ [Concomitant]
     Active Substance: BUPROPION HYDROCHLORIDE
     Dosage: UNK
  5. VITAMIN B12 [Concomitant]
     Active Substance: CYANOCOBALAMIN
     Dosage: UNK
  6. GLATIRAMER ACETATE INJECTION [Suspect]
     Active Substance: GLATIRAMER ACETATE
     Dosage: 3 WEEKLY
     Route: 058
     Dates: start: 20200911

REACTIONS (9)
  - Injection site rash [Recovering/Resolving]
  - Injection site pain [Unknown]
  - Dizziness [Recovered/Resolved]
  - Hypoaesthesia oral [Recovered/Resolved]
  - Injection site mass [Unknown]
  - Chest pain [Recovered/Resolved]
  - Tunnel vision [Recovered/Resolved]
  - Nausea [Recovered/Resolved]
  - Injection site bruising [Recovering/Resolving]

NARRATIVE: CASE EVENT DATE: 20201028
